FAERS Safety Report 6892276-6 (Version None)
Quarter: 2010Q3

REPORT INFORMATION
  Report Type: 
  Country: None (occurrence: None)
  Receive Date: 20100731
  Receipt Date: 20080331
  Transmission Date: 20110219
  Serious: No
  Sender: FDA-Public Use
  Company Number: US-PFIZER INC-2008029028

PATIENT
  Sex: Male
  Weight: 65.32 kg

DRUGS (4)
  1. NORVASC [Suspect]
     Route: 048
     Dates: start: 19980101
  2. VALSARTAN [Concomitant]
  3. LIPITOR [Concomitant]
  4. AVODART [Concomitant]

REACTIONS (1)
  - PERIODONTITIS [None]
